FAERS Safety Report 16239946 (Version 2)
Quarter: 2019Q2

REPORT INFORMATION
  Report Type: Report from Study
  Country: US (occurrence: US)
  Receive Date: 20190425
  Receipt Date: 20190515
  Transmission Date: 20190711
  Serious: Yes (Other)
  Sender: FDA-Public Use
  Company Number: US-GILEAD-2019-0403859

PATIENT
  Age: 64 Year
  Sex: Female

DRUGS (17)
  1. INSULIN [Concomitant]
     Active Substance: INSULIN NOS
  2. ZOLPIDEM [Concomitant]
     Active Substance: ZOLPIDEM\ZOLPIDEM TARTRATE
  3. TRIAMCINOLONE [Concomitant]
     Active Substance: TRIAMCINOLONE
  4. MUPIROCIN. [Concomitant]
     Active Substance: MUPIROCIN
  5. METFORMIN [Concomitant]
     Active Substance: METFORMIN HYDROCHLORIDE
  6. ALLOPURINOL. [Concomitant]
     Active Substance: ALLOPURINOL
  7. DIGOXIN. [Concomitant]
     Active Substance: DIGOXIN
  8. ATORVASTATIN [Concomitant]
     Active Substance: ATORVASTATIN
  9. SPIRONOLACTONE. [Concomitant]
     Active Substance: SPIRONOLACTONE
  10. MIRALAX [Concomitant]
     Active Substance: POLYETHYLENE GLYCOL 3350
  11. GLIMEPIRIDE. [Concomitant]
     Active Substance: GLIMEPIRIDE
  12. AMBRISENTAN [Suspect]
     Active Substance: AMBRISENTAN
     Indication: PULMONARY ARTERIAL HYPERTENSION
     Dosage: 10 MG, QD
     Route: 048
     Dates: start: 201410
  13. METOLAZONE. [Concomitant]
     Active Substance: METOLAZONE
  14. FLUOXETINE [Concomitant]
     Active Substance: FLUOXETINE HYDROCHLORIDE
  15. METOPROLOL. [Concomitant]
     Active Substance: METOPROLOL
  16. FUROSEMIDE. [Concomitant]
     Active Substance: FUROSEMIDE
  17. LACTULOSE. [Concomitant]
     Active Substance: LACTULOSE

REACTIONS (2)
  - Productive cough [Unknown]
  - Dyspnoea [Unknown]

NARRATIVE: CASE EVENT DATE: 20190415
